FAERS Safety Report 19237689 (Version 1)
Quarter: 2021Q2

REPORT INFORMATION
  Report Type: Spontaneous
  Country: US (occurrence: US)
  Receive Date: 20210510
  Receipt Date: 20210510
  Transmission Date: 20210717
  Serious: No
  Sender: FDA-Public Use
  Company Number: US-SA-2021SA153724

PATIENT
  Sex: Male

DRUGS (17)
  1. VUMERITY [Suspect]
     Active Substance: DIROXIMEL FUMARATE
     Dosage: 231MG
     Dates: start: 202104
  2. FAMOTIDINE. [Concomitant]
     Active Substance: FAMOTIDINE
  3. BRILINTA [Concomitant]
     Active Substance: TICAGRELOR
  4. FINASTERIDE. [Concomitant]
     Active Substance: FINASTERIDE
  5. METOPROLOL TARTRATE. [Concomitant]
     Active Substance: METOPROLOL TARTRATE
  6. TAMSULOSIN [Concomitant]
     Active Substance: TAMSULOSIN
  7. HYDROXYZINE [Concomitant]
     Active Substance: HYDROXYZINE HYDROCHLORIDE
  8. QUETIAPINE. [Concomitant]
     Active Substance: QUETIAPINE
  9. VITAMIN D3 [Concomitant]
     Active Substance: CHOLECALCIFEROL
  10. AUBAGIO [Suspect]
     Active Substance: TERIFLUNOMIDE
     Indication: MULTIPLE SCLEROSIS
     Dosage: UNK
     Dates: start: 20210424
  11. ESCITALOPRAM [Concomitant]
     Active Substance: ESCITALOPRAM OXALATE
  12. BACLOFEN. [Concomitant]
     Active Substance: BACLOFEN
  13. SIMVASTATIN. [Concomitant]
     Active Substance: SIMVASTATIN
  14. DICLOFENAC [Concomitant]
     Active Substance: DICLOFENAC
     Dosage: DICLOFENAC S TBE 75MG
  15. LAMOTRIGINE. [Concomitant]
     Active Substance: LAMOTRIGINE
  16. MYRBETRIQ [Concomitant]
     Active Substance: MIRABEGRON
  17. SILDENAFIL. [Concomitant]
     Active Substance: SILDENAFIL

REACTIONS (3)
  - Nausea [Unknown]
  - Dizziness [Unknown]
  - Blood test abnormal [Unknown]
